FAERS Safety Report 7190714-5 (Version None)
Quarter: 2010Q4

REPORT INFORMATION
  Report Type: 
  Country: None (occurrence: None)
  Receive Date: 20101223
  Receipt Date: 20101214
  Transmission Date: 20110411
  Serious: Yes (Hospitalization, Other)
  Sender: FDA-Public Use
  Company Number: DE-MEDIMMUNE-MEDI-0012014

PATIENT
  Sex: Male
  Weight: 0.59 kg

DRUGS (5)
  1. SYNAGIS [Suspect]
     Indication: BRONCHOPULMONARY DYSPLASIA
     Dates: start: 20101008, end: 20101105
  2. SYNAGIS [Suspect]
     Dates: start: 20101203, end: 20101203
  3. SALBUTAMOL [Concomitant]
  4. CORTISONE ACETATE [Concomitant]
  5. ANTIBIOTICS [Concomitant]

REACTIONS (4)
  - BRONCHITIS [None]
  - COUGH [None]
  - PYREXIA [None]
  - RESPIRATORY SYNCYTIAL VIRUS INFECTION [None]
